FAERS Safety Report 10962560 (Version 3)
Quarter: 2015Q3

REPORT INFORMATION
  Report Type: Report from Study
  Country: FR (occurrence: FR)
  Receive Date: 20150327
  Receipt Date: 20150710
  Transmission Date: 20151125
  Serious: Yes (Hospitalization, Other)
  Sender: FDA-Public Use
  Company Number: PHHO2015FR004652

PATIENT
  Age: 23 Year
  Sex: Male
  Weight: 67 kg

DRUGS (5)
  1. BLINDED NO TREATMENT RECEIVED [Suspect]
     Active Substance: UNSPECIFIED INGREDIENT
     Indication: HYPER IGD SYNDROME
     Dosage: CODE NOT BROKEN
     Route: 058
     Dates: start: 20150102
  2. FLAGYL [Suspect]
     Active Substance: METRONIDAZOLE\METRONIDAZOLE HYDROCHLORIDE
     Dosage: UNK
  3. CIFLOX [Suspect]
     Active Substance: CIPROFLOXACIN
  4. BLINDED ACZ885 [Suspect]
     Active Substance: CANAKINUMAB
     Indication: HYPER IGD SYNDROME
     Dosage: CODE NOT BROKEN
     Route: 058
     Dates: start: 20150102
  5. PLACEBO [Suspect]
     Active Substance: UNSPECIFIED INGREDIENT
     Indication: HYPER IGD SYNDROME
     Dosage: CODE NOT BROKEN
     Route: 058
     Dates: start: 20150102

REACTIONS (1)
  - Diarrhoea infectious [Recovered/Resolved]

NARRATIVE: CASE EVENT DATE: 20150301
